FAERS Safety Report 5322942-5 (Version None)
Quarter: 2007Q2

REPORT INFORMATION
  Report Type: 
  Country: None (occurrence: None)
  Receive Date: 20070511
  Receipt Date: 20070504
  Transmission Date: 20071010
  Serious: Yes (Disabling)
  Sender: FDA-Public Use
  Company Number: CA-MERCK-0705CAN00048

PATIENT
  Sex: Female

DRUGS (2)
  1. ZETIA [Suspect]
     Route: 048
  2. ROSUVASTATIN CALCIUM [Suspect]
     Route: 048

REACTIONS (1)
  - MUSCULAR WEAKNESS [None]
